FAERS Safety Report 7745772-3 (Version None)
Quarter: 2011Q3

REPORT INFORMATION
  Report Type: 
  Country: None (occurrence: None)
  Receive Date: 20110830
  Receipt Date: 20110818
  Transmission Date: 20111222
  Serious: Yes (Hospitalization)
  Sender: FDA-Public Use
  Company Number: 2009SP036666

PATIENT
  Age: 21 Year
  Sex: Female
  Weight: 59 kg

DRUGS (8)
  1. CERAZETTE (DESOGESTREL /00754001/) [Suspect]
     Indication: ENDOMETRIOSIS
     Dosage: 68 MG
     Dates: start: 20110414
  2. CERAZETTE (DESOGESTREL /00754001/) [Suspect]
     Indication: PAIN
     Dosage: 68 MG
     Dates: start: 20110414
  3. CERAZETTE (DESOGESTREL /00754001/) [Suspect]
     Indication: CONTRACEPTION
     Dosage: 68 MG
     Dates: start: 20110414
  4. IMPLANON [Suspect]
     Indication: PAIN
     Dosage: 68 MG
     Dates: start: 20090902
  5. IMPLANON [Suspect]
     Indication: ENDOMETRIOSIS
     Dosage: 68 MG
     Dates: start: 20090902
  6. IMPLANON [Suspect]
     Indication: CONTRACEPTION
     Dosage: 68 MG
     Dates: start: 20090902
  7. ESTRADIOL VALERATE/DIENOGEST [Concomitant]
  8. MIRENA [Concomitant]

REACTIONS (8)
  - CYSTITIS [None]
  - BACTERIAL TEST POSITIVE [None]
  - CHLAMYDIAL INFECTION [None]
  - PREGNANCY WITH IMPLANT CONTRACEPTIVE [None]
  - MATERNAL EXPOSURE DURING PREGNANCY [None]
  - PELVIC INFECTION [None]
  - ABORTION SPONTANEOUS [None]
  - PAIN [None]
